FAERS Safety Report 6261197-4 (Version None)
Quarter: 2009Q3

REPORT INFORMATION
  Report Type: 
  Country: None (occurrence: None)
  Receive Date: 20090709
  Receipt Date: 20090626
  Transmission Date: 20100115
  Serious: Yes (Other)
  Sender: FDA-Public Use
  Company Number: HU-RANBAXY-2009RR-25364

PATIENT
  Sex: Female

DRUGS (1)
  1. SOTRET [Suspect]

REACTIONS (1)
  - DRUG EXPOSURE DURING PREGNANCY [None]
